FAERS Safety Report 9606290 (Version 1)
Quarter: 2013Q4

REPORT INFORMATION
  Report Type: Spontaneous
  Country: US (occurrence: US)
  Receive Date: 20131008
  Receipt Date: 20131008
  Transmission Date: 20140711
  Serious: No
  Sender: FDA-Public Use
  Company Number: US-AMGEN-USASP2013050082

PATIENT
  Age: 68 Year
  Sex: Female

DRUGS (12)
  1. PROLIA [Suspect]
     Indication: OSTEOPENIA
     Dosage: UNK
     Dates: start: 201012
  2. VENTOLIN                           /00139501/ [Concomitant]
     Dosage: UNK UNK, AS NECESSARY
  3. ALBUTEROL                          /00139501/ [Concomitant]
  4. ADVAIR [Concomitant]
  5. SPIRIVA [Concomitant]
  6. VERAPAMIL [Concomitant]
     Dosage: 40 MG, QD
  7. LISINOPRIL/HCTZ [Concomitant]
  8. OMEPRAZOLE [Concomitant]
     Dosage: 40 MG, QD
  9. XANAX [Concomitant]
     Dosage: UNK UNK, AS NECESSARY
  10. IBUPROFEN [Concomitant]
     Dosage: 200 MG, UNK
  11. CALCIUM WITH VITAMIN D             /00944201/ [Concomitant]
  12. VITAMIN C                          /00008001/ [Concomitant]

REACTIONS (5)
  - Groin pain [Not Recovered/Not Resolved]
  - Dyspnoea [Unknown]
  - Bone pain [Unknown]
  - Arthralgia [Not Recovered/Not Resolved]
  - Pain in extremity [Not Recovered/Not Resolved]
